FAERS Safety Report 24140871 (Version 1)
Quarter: 2024Q3

REPORT INFORMATION
  Report Type: Spontaneous
  Country: US (occurrence: None)
  Receive Date: 20240725
  Receipt Date: 20240725
  Transmission Date: 20241017
  Serious: Yes (Hospitalization, Disabling, Other)
  Sender: Public
  Company Number: None

PATIENT
  Age: 47 Year
  Sex: Female
  Weight: 67.5 kg

DRUGS (1)
  1. HYDROXYCHLOROQUINE [Suspect]
     Active Substance: HYDROXYCHLOROQUINE
     Indication: Sjogren^s syndrome
     Dosage: FREQUENCY : TWICE A DAY;?
     Route: 048
     Dates: start: 20230621, end: 20230625

REACTIONS (6)
  - Electric shock sensation [None]
  - Balance disorder [None]
  - Coordination abnormal [None]
  - Neuropathy peripheral [None]
  - Paraesthesia [None]
  - Burning sensation [None]

NARRATIVE: CASE EVENT DATE: 20230621
